FAERS Safety Report 23617984 (Version 1)
Quarter: 2024Q1

REPORT INFORMATION
  Report Type: Other
  Country: NL (occurrence: NL)
  Receive Date: 20240311
  Receipt Date: 20240311
  Transmission Date: 20240410
  Serious: Yes (Life-Threatening, Hospitalization, Disabling, Other)
  Sender: FDA-Public Use
  Company Number: None

PATIENT

DRUGS (1)
  1. TOPIRAMATE [Suspect]
     Active Substance: TOPIRAMATE
     Indication: Nightmare
     Dosage: 200 MILLIGRAM, OD (1 X PER DAG 1 STUK)
     Route: 065
     Dates: start: 20220301

REACTIONS (3)
  - Hallucinations, mixed [Recovered/Resolved]
  - Suicidal ideation [Recovered/Resolved]
  - Aggression [Recovered/Resolved]
